FAERS Safety Report 8589201-9 (Version None)
Quarter: 2012Q3

REPORT INFORMATION
  Report Type: 
  Country: None (occurrence: None)
  Receive Date: 20120813
  Receipt Date: 20120801
  Transmission Date: 20120928
  Serious: Yes (Other)
  Sender: FDA-Public Use
  Company Number: US-ASTRAZENECA-2012SE56354

PATIENT
  Age: 23081 Day
  Sex: Female

DRUGS (10)
  1. FOSTAMATINIB DISODIUM [Suspect]
     Route: 048
     Dates: start: 20120503
  2. ATENOLOL [Suspect]
     Indication: HYPERTENSION
     Route: 048
  3. MOMETASONE FUROATE NASAL INHALER/SPRAY [Concomitant]
     Indication: SEASONAL ALLERGY
     Route: 045
     Dates: start: 20120411
  4. EZETIMIBE/SIMVASTATIN [Concomitant]
     Indication: HYPERCHOLESTEROLAEMIA
     Dosage: MULTIPLE DRUG
     Route: 048
  5. FOSTAMATINIB DISODIUM [Suspect]
     Indication: RHEUMATOID ARTHRITIS
     Dosage: FOR STUDY D4300C00004
     Route: 048
     Dates: start: 20111117, end: 20120503
  6. CYCLOSPORINE OPHTHALMIC [Concomitant]
     Indication: SJOGREN'S SYNDROME
     Route: 047
  7. PANTOPRAZOLE [Concomitant]
     Indication: GASTROOESOPHAGEAL REFLUX DISEASE
     Route: 048
  8. AMLODIPINE [Suspect]
     Indication: HYPERTENSION
     Route: 048
     Dates: start: 20111213
  9. CELECOXIB [Concomitant]
     Indication: RHEUMATOID ARTHRITIS
     Route: 048
  10. CITALOPRAM [Concomitant]
     Indication: DEPRESSION
     Route: 048

REACTIONS (1)
  - BRADYCARDIA [None]
